FAERS Safety Report 8921916 (Version 1)
Quarter: 2012Q4

REPORT INFORMATION
  Report Type: 
  Country: US (occurrence: US)
  Receive Date: 20121121
  Receipt Date: 20121121
  Transmission Date: 20130627
  Serious: Yes (Other)
  Sender: FDA-Public Use
  Company Number: US-PFIZER INC-2012287150

PATIENT
  Sex: Female

DRUGS (2)
  1. LATANOPROST [Suspect]
     Dosage: UNK
     Route: 047
  2. XALATAN [Suspect]
     Dosage: 1 gtt/ 1X/day
     Route: 047

REACTIONS (1)
  - Intraocular pressure increased [Unknown]
